FAERS Safety Report 8413917-8 (Version None)
Quarter: 2012Q2

REPORT INFORMATION
  Report Type: 
  Country: None (occurrence: None)
  Receive Date: 20120605
  Receipt Date: 20120601
  Transmission Date: 20120825
  Serious: Yes (Hospitalization, Other)
  Sender: FDA-Public Use
  Company Number: CA-BAYER-2012-054545

PATIENT

DRUGS (2)
  1. GADAVIST [Suspect]
     Dosage: 6.5 ML, ONCE
     Route: 042
  2. PROPOFOL [Concomitant]

REACTIONS (1)
  - PULMONARY OEDEMA [None]
